FAERS Safety Report 21628240 (Version 2)
Quarter: 2022Q4

REPORT INFORMATION
  Report Type: Spontaneous
  Country: CA (occurrence: CA)
  Receive Date: 20221122
  Receipt Date: 20221228
  Transmission Date: 20230112
  Serious: Yes (Other)
  Sender: FDA-Public Use
  Company Number: CA-GLAXOSMITHKLINE-CA2022GSK172535

PATIENT

DRUGS (5)
  1. WELLBUTRIN [Suspect]
     Active Substance: BUPROPION HYDROCHLORIDE
     Indication: Depression
     Dosage: 300 MG, QD, 1 IN 1 D
     Route: 048
     Dates: end: 202210
  2. ACETAMINOPHEN\TRAMADOL [Concomitant]
     Active Substance: ACETAMINOPHEN\TRAMADOL
     Indication: Arthralgia
     Dosage: UNK
     Route: 048
     Dates: end: 202210
  3. TYLENOL [Concomitant]
     Active Substance: ACETAMINOPHEN
     Indication: Arthralgia
     Dosage: UNK
     Route: 048
  4. ADVIL [Concomitant]
     Active Substance: IBUPROFEN
     Indication: Arthralgia
     Dosage: UNK
     Route: 048
  5. NAPROXEN [Concomitant]
     Active Substance: NAPROXEN
     Indication: Arthralgia
     Dosage: UNK
     Route: 048
     Dates: start: 202210

REACTIONS (4)
  - Hysterectomy [Unknown]
  - Joint swelling [Recovering/Resolving]
  - Depression [Not Recovered/Not Resolved]
  - Therapy cessation [Unknown]

NARRATIVE: CASE EVENT DATE: 20220901
